FAERS Safety Report 8988128 (Version 2)
Quarter: 2013Q1

REPORT INFORMATION
  Report Type: Spontaneous
  Country: CA (occurrence: CA)
  Receive Date: 20121227
  Receipt Date: 20130109
  Transmission Date: 20140127
  Serious: Yes (Death, Hospitalization)
  Sender: FDA-Public Use
  Company Number: CA-CELGENEUS-028-50794-12121497

PATIENT
  Age: 67 Year
  Sex: Female
  Weight: 80.8 kg

DRUGS (8)
  1. VIDAZA [Suspect]
     Indication: MYELODYSPLASTIC SYNDROME
     Dosage: 75 MILLIGRAM/SQ. METER
     Route: 058
     Dates: start: 20121010, end: 20121014
  2. HCTZ [Concomitant]
     Indication: HYPERTENSION
     Dosage: 12.5
     Route: 065
  3. METOPROLOL [Concomitant]
     Indication: CORONARY ARTERY DISEASE
     Dosage: 100
     Route: 065
  4. ALLOPURINOL [Concomitant]
     Indication: PROPHYLAXIS
     Dosage: 100
     Route: 065
  5. SYNTHROID [Concomitant]
     Indication: THYROID DISORDER
     Dosage: 137
     Route: 065
  6. ATORVASTATIN [Concomitant]
     Indication: BLOOD CHOLESTEROL INCREASED
     Dosage: 20
     Route: 065
  7. IRBESARTAN [Concomitant]
     Indication: PRODUCT USED FOR UNKNOWN INDICATION
     Dosage: 300
     Route: 065
  8. TYLENOL [Concomitant]
     Indication: PRODUCT USED FOR UNKNOWN INDICATION
     Route: 065

REACTIONS (2)
  - Interstitial lung disease [Fatal]
  - Atypical pneumonia [Recovering/Resolving]
